FAERS Safety Report 10078910 (Version 2)
Quarter: 2014Q2

REPORT INFORMATION
  Report Type: Spontaneous
  Country: CN (occurrence: CN)
  Receive Date: 20140415
  Receipt Date: 20140418
  Transmission Date: 20141212
  Serious: Yes (Hospitalization)
  Sender: FDA-Public Use
  Company Number: CN-BAYER-2014-051181

PATIENT
  Sex: 0

DRUGS (1)
  1. BAYASPIRIN [Suspect]
     Dosage: UNK
     Route: 048
     Dates: start: 201403, end: 2014

REACTIONS (2)
  - Gastrointestinal haemorrhage [Recovering/Resolving]
  - Shock [Recovering/Resolving]
